FAERS Safety Report 13322147 (Version 1)
Quarter: 2017Q1

REPORT INFORMATION
  Report Type: Spontaneous
  Country: BR (occurrence: BR)
  Receive Date: 20170308
  Receipt Date: 20170308
  Transmission Date: 20170428
  Serious: Yes (Life-Threatening)
  Sender: FDA-Public Use
  Company Number: PHHY2017BR031367

PATIENT
  Sex: Male

DRUGS (1)
  1. CIPROFLOXACIN. [Suspect]
     Active Substance: CIPROFLOXACIN
     Indication: URINARY TRACT INFECTION
     Dosage: 500 MG, BID
     Route: 048
     Dates: start: 20170220

REACTIONS (6)
  - Abdominal pain [Unknown]
  - Feeling abnormal [Unknown]
  - Eyelid oedema [Unknown]
  - Renal pain [Unknown]
  - Swelling [Unknown]
  - Erythema [Unknown]
